FAERS Safety Report 10881600 (Version 1)
Quarter: 2015Q1

REPORT INFORMATION
  Report Type: Spontaneous
  Country: ES (occurrence: None)
  Receive Date: 20150226
  Receipt Date: 20150226
  Transmission Date: 20150721
  Serious: Yes (Other)
  Sender: FDA-Public Use
  Company Number: ES-ALKEM-000870

PATIENT
  Sex: Male

DRUGS (3)
  1. MYCOPHENOLATE MOFETIL (MYCOPHENOLATE MOFETIL) [Suspect]
     Active Substance: MYCOPHENOLATE MOFETIL
     Indication: RENAL TRANSPLANT
  2. TACROLIMUS (TACROLIMUS) [Suspect]
     Active Substance: TACROLIMUS
     Indication: RENAL TRANSPLANT
  3. BASILIXIMAB (BASILIXIMAB) [Concomitant]

REACTIONS (5)
  - Graft loss [None]
  - BK virus infection [None]
  - Polyomavirus-associated nephropathy [None]
  - Transplant rejection [None]
  - Tubulointerstitial nephritis [None]
